APPROVED DRUG PRODUCT: SENSORCAINE
Active Ingredient: BUPIVACAINE HYDROCHLORIDE; EPINEPHRINE BITARTRATE
Strength: 0.75%;0.0091MG/ML
Dosage Form/Route: INJECTABLE;INJECTION
Application: N018304 | Product #005 | TE Code: AP
Applicant: FRESENIUS KABI USA LLC
Approved: Sep 2, 1983 | RLD: Yes | RS: No | Type: RX